FAERS Safety Report 17139356 (Version 2)
Quarter: 2020Q1

REPORT INFORMATION
  Report Type: Spontaneous
  Country: GB (occurrence: GB)
  Receive Date: 20191211
  Receipt Date: 20200124
  Transmission Date: 20200409
  Serious: Yes (Other)
  Sender: FDA-Public Use
  Company Number: GB-BIOGEN-2017BI00482811

PATIENT
  Age: 54 Year
  Sex: Female

DRUGS (3)
  1. ATORVASTATIN [Concomitant]
     Active Substance: ATORVASTATIN
     Indication: PRODUCT USED FOR UNKNOWN INDICATION
     Route: 065
  2. TECFIDERA [Suspect]
     Active Substance: DIMETHYL FUMARATE
     Indication: MULTIPLE SCLEROSIS
     Dosage: MAINTENANCE DOSE
     Route: 050
     Dates: start: 20150716
  3. TECFIDERA [Suspect]
     Active Substance: DIMETHYL FUMARATE
     Dosage: MAINTENANCE DOSE
     Route: 050
     Dates: start: 2015

REACTIONS (12)
  - Diarrhoea [Unknown]
  - Fatigue [Unknown]
  - Vomiting [Unknown]
  - Influenza [Unknown]
  - Infection [Unknown]
  - Paraesthesia [Unknown]
  - Lymphocyte count decreased [Unknown]
  - Hypoaesthesia [Unknown]
  - Malaise [Unknown]
  - Feeding disorder [Unknown]
  - Blood test abnormal [Unknown]
  - Tuberculosis [Unknown]

NARRATIVE: CASE EVENT DATE: 20180322
